FAERS Safety Report 17077212 (Version 2)
Quarter: 2019Q4

REPORT INFORMATION
  Report Type: Spontaneous
  Country: JP (occurrence: JP)
  Receive Date: 20191126
  Receipt Date: 20191205
  Transmission Date: 20200122
  Serious: Yes (Other)
  Sender: FDA-Public Use
  Company Number: JP-GLAXOSMITHKLINE-JP2019208580

PATIENT
  Age: 71 Year
  Sex: Female

DRUGS (3)
  1. RELVAR ELLIPTA [Suspect]
     Active Substance: FLUTICASONE FUROATE\VILANTEROL TRIFENATATE
     Indication: ASTHMA
     Dosage: 200 ?G, U
     Route: 055
  2. SALIVEHT [Concomitant]
     Dosage: UNK
  3. MEPTIN AIR [Suspect]
     Active Substance: PROCATEROL HYDROCHLORIDE
     Indication: ASTHMA
     Dosage: UNK, PRN
     Route: 055

REACTIONS (5)
  - Treatment noncompliance [Unknown]
  - Oral candidiasis [Unknown]
  - Therapy cessation [Unknown]
  - Oesophageal candidiasis [Unknown]
  - Wrong technique in product usage process [Unknown]

NARRATIVE: CASE EVENT DATE: 20191120
